FAERS Safety Report 9648629 (Version 4)
Quarter: 2013Q4

REPORT INFORMATION
  Report Type: Report from Study
  Country: GB (occurrence: GB)
  Receive Date: 20131028
  Receipt Date: 20131215
  Transmission Date: 20140711
  Serious: No
  Sender: FDA-Public Use
  Company Number: GB-PFIZER INC-2013302081

PATIENT
  Age: 44 Year
  Sex: Male
  Weight: 87 kg

DRUGS (6)
  1. CRIZOTINIB [Suspect]
     Indication: ALVEOLAR SOFT PART SARCOMA
     Dosage: 250 MG, 2X/DAY
     Route: 048
     Dates: start: 20130930, end: 20131015
  2. METFORMIN HYDROCHLORIDE [Concomitant]
     Indication: TYPE 2 DIABETES MELLITUS
     Dosage: 500 MG, 1X/DAY
     Route: 048
     Dates: start: 201207
  3. CYCLIZINE [Concomitant]
     Indication: NAUSEA
     Dosage: 50 MG, 3X/DAY
     Route: 048
     Dates: start: 20131014, end: 20131015
  4. METOCLOPRAMIDE [Concomitant]
     Indication: NAUSEA
     Dosage: 10 MG, 3X/DAY
     Route: 048
     Dates: start: 20130930, end: 20131014
  5. ONDANSETRON [Concomitant]
     Indication: NAUSEA
     Dosage: 4 MG, ONCE DAILY AS NEEDED
     Route: 048
     Dates: start: 20131014, end: 20131015
  6. MOVICOL [Concomitant]
     Indication: CONSTIPATION
     Dosage: 2 DF (CACHET), 2X/DAY
     Route: 048
     Dates: start: 20131014, end: 20131015

REACTIONS (2)
  - Disease progression [Not Recovered/Not Resolved]
  - Alveolar soft part sarcoma [Not Recovered/Not Resolved]
